FAERS Safety Report 9401885 (Version 2)
Quarter: 2013Q3

REPORT INFORMATION
  Report Type: Spontaneous
  Country: US (occurrence: US)
  Receive Date: 20130716
  Receipt Date: 20130718
  Transmission Date: 20140515
  Serious: Yes (Other)
  Sender: FDA-Public Use
  Company Number: US-TEVA-418787USA

PATIENT
  Age: 38 Year
  Sex: Female

DRUGS (1)
  1. PARAGARD 380A [Suspect]
     Indication: CONTRACEPTION
     Route: 015
     Dates: start: 20130613, end: 20130711

REACTIONS (3)
  - Device dislocation [Recovered/Resolved]
  - Pelvic pain [Unknown]
  - Device expulsion [Unknown]
